FAERS Safety Report 8110686-6 (Version None)
Quarter: 2012Q1

REPORT INFORMATION
  Report Type: 
  Country: None (occurrence: None)
  Receive Date: 20120201
  Receipt Date: 20120201
  Transmission Date: 20120608
  Serious: No
  Sender: FDA-Public Use
  Company Number: None

PATIENT
  Sex: Male
  Weight: 60 kg

DRUGS (6)
  1. METHOTREXATE [Suspect]
     Dosage: 45 MG
  2. CYTARABINE [Suspect]
     Dosage: 2180 MG
  3. VINCRISTINE [Suspect]
     Dosage: 8 MG
  4. CYCLOPHOSPHAMIDE [Suspect]
     Dosage: 3650 MG
  5. PEG-L-ASPARAGINASE (K-H) [Suspect]
     Dosage: 8800 IU
  6. MERCAPTOPURINE [Suspect]
     Dosage: 2800 MG

REACTIONS (2)
  - BLOOD CHOLESTEROL INCREASED [None]
  - BLOOD TRIGLYCERIDES INCREASED [None]
